FAERS Safety Report 22522334 (Version 1)
Quarter: 2023Q2

REPORT INFORMATION
  Report Type: Spontaneous
  Country: KR (occurrence: KR)
  Receive Date: 20230605
  Receipt Date: 20230605
  Transmission Date: 20230722
  Serious: Yes (Hospitalization)
  Sender: FDA-Public Use
  Company Number: KR-ORGANON-O2305KOR003196

PATIENT
  Age: 58 Year
  Sex: Female
  Weight: 106 kg

DRUGS (14)
  1. COZAAR [Suspect]
     Active Substance: LOSARTAN POTASSIUM
     Dosage: 50 MILLIGRAM, 1 DAY, FILM COATED TABLETS
     Route: 048
     Dates: start: 20200331
  2. PACLITAXEL [Suspect]
     Active Substance: PACLITAXEL
     Dosage: 45 MILLIGRAM/SQ. METER, 1 WEEK, ROUTE: VEIN
     Dates: start: 20190510, end: 20190614
  3. CARBOPLATIN [Suspect]
     Active Substance: CARBOPLATIN
     Dosage: UNK, 1 WEEK, ROUTE: VEIN
     Dates: start: 20190510, end: 20190614
  4. PREGABALIN [Concomitant]
     Active Substance: PREGABALIN
     Dosage: 75 MILLIGRAM, 0.5 DAY, HARD CAPSULE, POWDER
     Route: 048
     Dates: start: 20190925
  5. ACETAMINOPHEN\TRAMADOL HYDROCHLORIDE [Concomitant]
     Active Substance: ACETAMINOPHEN\TRAMADOL HYDROCHLORIDE
     Dosage: 1 FORMULATION, 0.5 DAY, SLOW-RELEASE FILM-COATED TABLETS
     Route: 048
     Dates: start: 20190925
  6. EPERISONE HYDROCHLORIDE [Concomitant]
     Active Substance: EPERISONE HYDROCHLORIDE
     Dosage: 50 MILLIGRAM, 0.33 DAY
     Route: 048
     Dates: start: 20190925
  7. LEVOTHYROXINE SODIUM [Concomitant]
     Active Substance: LEVOTHYROXINE SODIUM
     Dosage: 150 MICROGRAM, 1 DAY, UNCOATED TABLET
     Route: 048
     Dates: start: 20191217
  8. INDAPAMIDE [Concomitant]
     Active Substance: INDAPAMIDE
     Dosage: 1.5 MILLIGRAM, 1 DAY, SLOW-RELEASE FILM-COATED TABLETS
     Route: 048
     Dates: start: 20200331
  9. ACETAMINOPHEN\CODEINE\IBUPROFEN [Concomitant]
     Active Substance: ACETAMINOPHEN\CODEINE\IBUPROFEN
     Dosage: 1 FORMULATION, 0.33 DAY, HARD CAPSULE, POWDER
     Route: 048
     Dates: start: 20200408
  10. ACETAMINOPHEN [Concomitant]
     Active Substance: ACETAMINOPHEN
     Dosage: 1300 MILLIGRAM, 0.33 DAY, SLOW-RELEASE FILM-COATED TABLETS
     Route: 048
     Dates: start: 20200428, end: 20200428
  11. METOCLOPRAMIDE [Concomitant]
     Active Substance: METOCLOPRAMIDE
     Dosage: 5 MILLIGRAM, 0.33 DAY
     Route: 048
     Dates: start: 20200428, end: 20200428
  12. CIPROFLOXACIN HYDROCHLORIDE [Concomitant]
     Active Substance: CIPROFLOXACIN HYDROCHLORIDE
     Dosage: 250 MILLIGRAM, 0.5 DAY
     Route: 048
     Dates: start: 20200428, end: 20200428
  13. TIROPRAMIDE HYDROCHLORIDE [Concomitant]
     Dosage: 100 MILLIGRAM, 0.33 DAY, FILM COATED TABLETS
     Route: 048
     Dates: start: 20200428, end: 20200428
  14. REBAMIPIDE [Concomitant]
     Active Substance: REBAMIPIDE
     Dosage: 100 MILLIGRAM, 0.33 DAY
     Route: 048
     Dates: start: 20200428, end: 20200428

REACTIONS (1)
  - Colitis [Recovered/Resolved]

NARRATIVE: CASE EVENT DATE: 20200429
